FAERS Safety Report 21967228 (Version 3)
Quarter: 2023Q1

REPORT INFORMATION
  Report Type: Spontaneous
  Country: JP (occurrence: JP)
  Receive Date: 20230208
  Receipt Date: 20230330
  Transmission Date: 20230418
  Serious: Yes (Death, Life-Threatening, Hospitalization, Other)
  Sender: FDA-Public Use
  Company Number: JP-SANOFI-2021SA019795

PATIENT
  Age: 87 Year
  Sex: Female
  Weight: 46.3 kg

DRUGS (23)
  1. MYSTAN [Suspect]
     Active Substance: CLOBAZAM
     Indication: Status epilepticus
     Dosage: 10 MG, Q12H (MORNING AND EVENING)
     Route: 048
     Dates: start: 20221211, end: 20221216
  2. MYSTAN [Suspect]
     Active Substance: CLOBAZAM
     Dosage: 10 MG, QD
     Route: 048
     Dates: start: 20221208, end: 20221210
  3. VALPROATE SODIUM [Suspect]
     Active Substance: VALPROATE SODIUM
     Indication: Product used for unknown indication
     Dosage: UNK
     Route: 048
  4. MIDAZOLAM [Suspect]
     Active Substance: MIDAZOLAM
     Indication: Status epilepticus
     Dosage: 0.043 MG/KG, QD
     Route: 040
     Dates: start: 20220915, end: 20220915
  5. MIDAZOLAM [Suspect]
     Active Substance: MIDAZOLAM
     Dosage: 0.086 UNK
     Route: 042
     Dates: start: 20221209, end: 20221209
  6. MIDAZOLAM [Suspect]
     Active Substance: MIDAZOLAM
     Dosage: 0.045 MG/KG, QD
     Route: 042
     Dates: start: 20221215, end: 20221216
  7. GENTAMICIN SULFATE [Suspect]
     Active Substance: GENTAMICIN SULFATE
     Indication: Product used for unknown indication
     Dosage: 240 MG, QD
     Route: 065
     Dates: start: 20221203, end: 20221215
  8. AZOSEMIDE [Suspect]
     Active Substance: AZOSEMIDE
     Indication: Product used for unknown indication
     Dosage: 30 MG, QD
     Route: 048
     Dates: start: 20221202, end: 20221212
  9. AZOSEMIDE [Suspect]
     Active Substance: AZOSEMIDE
     Dosage: 15 MG
     Route: 048
     Dates: start: 20221213, end: 20221216
  10. LEVETIRACETAM [Suspect]
     Active Substance: LEVETIRACETAM
     Indication: Product used for unknown indication
     Dosage: UNK
     Route: 065
     Dates: start: 20221208, end: 20221217
  11. SPIRONOLACTONE [Suspect]
     Active Substance: SPIRONOLACTONE
     Indication: Product used for unknown indication
     Dosage: UNK
     Route: 065
     Dates: start: 20221202, end: 20221212
  12. AMPICILLIN SODIUM [Concomitant]
     Active Substance: AMPICILLIN SODIUM
     Indication: Product used for unknown indication
     Dosage: UNK
     Route: 065
     Dates: start: 20221203, end: 20221217
  13. BISOPROLOL [Concomitant]
     Active Substance: BISOPROLOL
     Indication: Product used for unknown indication
     Dosage: UNK
     Route: 065
     Dates: start: 20221203, end: 20221210
  14. HUMULIN R [Concomitant]
     Active Substance: INSULIN HUMAN
     Indication: Product used for unknown indication
     Dosage: UNK
     Route: 065
     Dates: start: 20221203, end: 20221215
  15. LANTUS [Concomitant]
     Active Substance: INSULIN GLARGINE
     Indication: Product used for unknown indication
     Dosage: UNK
     Route: 065
     Dates: start: 20221204, end: 20221216
  16. FOSPHENYTOIN SODIUM [Concomitant]
     Active Substance: FOSPHENYTOIN SODIUM
     Indication: Product used for unknown indication
     Dosage: UNK
     Route: 065
     Dates: start: 20221205, end: 20221208
  17. PHENOBARBITAL SODIUM [Concomitant]
     Active Substance: PHENOBARBITAL SODIUM
     Indication: Product used for unknown indication
     Dosage: UNK
     Route: 065
     Dates: start: 20221206, end: 20221206
  18. VIMPAT [Concomitant]
     Active Substance: LACOSAMIDE
     Indication: Product used for unknown indication
     Dosage: UNK
     Route: 065
     Dates: start: 20221208, end: 20221217
  19. CERCINE [Concomitant]
     Active Substance: DIAZEPAM
     Indication: Product used for unknown indication
     Dosage: UNK
     Route: 065
     Dates: start: 20221209, end: 20221209
  20. POTASSIUM CHLORIDE [Concomitant]
     Active Substance: POTASSIUM CHLORIDE
     Indication: Product used for unknown indication
     Dosage: UNK
     Route: 065
     Dates: start: 20221209, end: 20221210
  21. BISOPROLOL FUMARATE [Concomitant]
     Active Substance: BISOPROLOL FUMARATE
     Indication: Product used for unknown indication
     Dosage: UNK
     Route: 065
     Dates: start: 20221210, end: 20221216
  22. CALCIUM CHLORIDE\POTASSIUM CHLORIDE\SODIUM ACETATE\SODIUM CHLORIDE [Concomitant]
     Active Substance: CALCIUM CHLORIDE\POTASSIUM CHLORIDE\SODIUM ACETATE\SODIUM CHLORIDE
     Indication: Product used for unknown indication
     Dosage: UNK
     Route: 065
     Dates: start: 20221215, end: 20221217
  23. DEXTROSE\POTASSIUM CHLORIDE\SODIUM CHLORIDE\SODIUM LACTATE [Concomitant]
     Active Substance: DEXTROSE\POTASSIUM CHLORIDE\SODIUM CHLORIDE\SODIUM LACTATE
     Indication: Product used for unknown indication
     Dosage: UNK
     Route: 065
     Dates: start: 20221215, end: 20221217

REACTIONS (6)
  - Hypoxia [Fatal]
  - Hyperkalaemia [Fatal]
  - Respiratory failure [Fatal]
  - Acute kidney injury [Fatal]
  - Blood pressure decreased [Recovered/Resolved]
  - Hypothermia [Recovered/Resolved]

NARRATIVE: CASE EVENT DATE: 20221215
